FAERS Safety Report 7911949-7 (Version None)
Quarter: 2011Q4

REPORT INFORMATION
  Report Type: 
  Country: None (occurrence: None)
  Receive Date: 20111102
  Receipt Date: 20110506
  Transmission Date: 20120403
  Serious: Yes (Other)
  Sender: FDA-Public Use
  Company Number: AUR-APL-2011-01611

PATIENT
  Age: 63 Year
  Sex: Male

DRUGS (4)
  1. METOPROLOL TARTRATE [Suspect]
  2. NIFEDIPINE [Suspect]
  3. LIPITOR [Suspect]
  4. PLAVIX [Suspect]

REACTIONS (1)
  - DIARRHOEA [None]
